FAERS Safety Report 14498000 (Version 1)
Quarter: 2018Q1

REPORT INFORMATION
  Report Type: Spontaneous
  Country: GB (occurrence: GB)
  Receive Date: 20180206
  Receipt Date: 20180206
  Transmission Date: 20180509
  Serious: Yes (Disabling)
  Sender: FDA-Public Use
  Company Number: None

PATIENT
  Sex: Female
  Weight: 128 kg

DRUGS (7)
  1. ANTI HISTAMINES [Concomitant]
  2. SKIN, HAIR AND NAIL [Concomitant]
  3. VITAMIN C [Concomitant]
     Active Substance: ASCORBIC ACID
  4. VENTOLIN INHALERS [Concomitant]
  5. CORTICOSTEROID [Suspect]
     Active Substance: CORTICOSTEROID NOS
     Indication: ECZEMA
     Dosage: STRENGTH - ALL DIFFERENT STRENGTHS GRAM(S)?QUANTITY:2 1;?
     Route: 061
     Dates: start: 20110405, end: 20161106
  6. VITAMIN D [Concomitant]
     Active Substance: CHOLECALCIFEROL
  7. TUMERIC [Concomitant]
     Active Substance: HERBALS\TURMERIC

REACTIONS (2)
  - Drug ineffective [None]
  - Chemical burn of skin [None]

NARRATIVE: CASE EVENT DATE: 20161106
